FAERS Safety Report 5953754-7 (Version None)
Quarter: 2008Q4

REPORT INFORMATION
  Report Type: 
  Country: None (occurrence: None)
  Receive Date: 20081114
  Receipt Date: 20081020
  Transmission Date: 20090506
  Serious: No
  Sender: FDA-Public Use
  Company Number: US-BAYER-200832273NA

PATIENT
  Sex: Female

DRUGS (1)
  1. CIPROFLOXACIN [Suspect]
     Indication: STAPHYLOCOCCAL INFECTION
     Dates: start: 20041201, end: 20060101

REACTIONS (1)
  - IMMUNE SYSTEM DISORDER [None]
